FAERS Safety Report 6496570-2 (Version None)
Quarter: 2009Q4

REPORT INFORMATION
  Report Type: 
  Country: None (occurrence: None)
  Receive Date: 20091210
  Receipt Date: 20091202
  Transmission Date: 20100525
  Serious: Yes (Disabling, Other)
  Sender: FDA-Public Use
  Company Number: 2008-187617-NL

PATIENT
  Age: 24 Year
  Sex: Female

DRUGS (4)
  1. IMPLANON [Suspect]
     Indication: CONTRACEPTION
     Dosage: SC ;SC
     Route: 058
     Dates: start: 20020101, end: 20081009
  2. IMPLANON [Suspect]
     Indication: ENDOMETRIOSIS
     Dosage: SC ;SC
     Route: 058
     Dates: start: 20020101, end: 20081009
  3. IMPLANON [Suspect]
     Indication: CONTRACEPTION
     Dosage: SC ;SC
     Route: 058
     Dates: start: 20081009, end: 20081120
  4. IMPLANON [Suspect]
     Indication: ENDOMETRIOSIS
     Dosage: SC ;SC
     Route: 058
     Dates: start: 20081009, end: 20081120

REACTIONS (6)
  - CONDITION AGGRAVATED [None]
  - DIZZINESS [None]
  - DRUG HYPERSENSITIVITY [None]
  - IMPLANT SITE PRURITUS [None]
  - URTICARIA [None]
  - VISUAL IMPAIRMENT [None]
